FAERS Safety Report 5672907-9 (Version None)
Quarter: 2008Q1

REPORT INFORMATION
  Report Type: 
  Country: None (occurrence: None)
  Receive Date: 20080319
  Receipt Date: 20071113
  Transmission Date: 20080703
  Serious: No
  Sender: FDA-Public Use
  Company Number: US-ASTRAZENECA-2007UW26280

PATIENT
  Age: 46 Year
  Sex: Female
  Weight: 78 kg

DRUGS (10)
  1. SYMBICORT [Suspect]
     Indication: ASTHMA
     Dosage: 160/4.5 MCG 2 INHALATIONS BID
     Route: 055
  2. CIMBALTA [Concomitant]
  3. CELEBREX [Concomitant]
  4. TOPRAMAX [Concomitant]
  5. ALLEGRA [Concomitant]
  6. SINGULAIR [Concomitant]
  7. SEROQUEL [Concomitant]
  8. ASPIRIN [Concomitant]
  9. PRILOSEC [Concomitant]
  10. ALBUTEROL [Concomitant]

REACTIONS (2)
  - SWELLING FACE [None]
  - WEIGHT INCREASED [None]
